FAERS Safety Report 5413846-8 (Version None)
Quarter: 2007Q3

REPORT INFORMATION
  Report Type: 
  Country: None (occurrence: None)
  Receive Date: 20070814
  Receipt Date: 20070508
  Transmission Date: 20080115
  Serious: Yes (Disabling)
  Sender: FDA-Public Use
  Company Number: US-BRISTOL-MYERS SQUIBB COMPANY-13726542

PATIENT
  Age: 50 Year
  Sex: Male

DRUGS (10)
  1. REYATAZ [Suspect]
     Indication: HIV INFECTION
     Route: 048
     Dates: start: 20040618, end: 20070402
  2. VICODIN [Concomitant]
     Dates: start: 20040602
  3. NORVIR [Concomitant]
     Dates: start: 20040618, end: 20070402
  4. ZANTAC 150 [Concomitant]
     Dates: start: 20041222
  5. REQUIP [Concomitant]
     Dates: start: 20061213
  6. POTASSIUM CHLORIDE [Concomitant]
     Dates: start: 20061213
  7. LASIX [Concomitant]
     Dates: start: 20061213
  8. EPZICOM [Concomitant]
     Dates: start: 20061213
  9. TOPROL-XL [Concomitant]
     Dates: start: 20061213
  10. AMBIEN CR [Concomitant]
     Dates: start: 20061213

REACTIONS (1)
  - BLOOD BILIRUBIN INCREASED [None]
